FAERS Safety Report 8519197-7 (Version None)
Quarter: 2012Q3

REPORT INFORMATION
  Report Type: 
  Country: None (occurrence: None)
  Receive Date: 20120718
  Receipt Date: 20120711
  Transmission Date: 20120928
  Serious: Yes (Hospitalization)
  Sender: FDA-Public Use
  Company Number: DK-ELI_LILLY_AND_COMPANY-DK201207000243

PATIENT
  Sex: Female
  Weight: 94 kg

DRUGS (2)
  1. ASPIRIN [Concomitant]
  2. EFFIENT [Suspect]
     Indication: ACUTE CORONARY SYNDROME

REACTIONS (1)
  - ANGINA PECTORIS [None]
